FAERS Safety Report 16201124 (Version 1)
Quarter: 2019Q2

REPORT INFORMATION
  Report Type: Spontaneous
  Country: FR (occurrence: FR)
  Receive Date: 20190416
  Receipt Date: 20190416
  Transmission Date: 20190711
  Serious: Yes (Death)
  Sender: FDA-Public Use
  Company Number: FR-ZYDUS-035715

PATIENT
  Age: 77 Year
  Sex: Female
  Weight: 75 kg

DRUGS (6)
  1. ATENOLOL. [Suspect]
     Active Substance: ATENOLOL
     Indication: PRODUCT USED FOR UNKNOWN INDICATION
     Route: 048
  2. INSULIN GLARGINE [Suspect]
     Active Substance: INSULIN GLARGINE
     Indication: PRODUCT USED FOR UNKNOWN INDICATION
     Route: 058
  3. ACETYLSALICYLIC ACID [Suspect]
     Active Substance: ASPIRIN
     Indication: PRODUCT USED FOR UNKNOWN INDICATION
     Dosage: 75 MG POWDER FOR ORAL SOLUTION IN A SACHET
     Route: 048
  4. NICORANDIL [Suspect]
     Active Substance: NICORANDIL
     Indication: PRODUCT USED FOR UNKNOWN INDICATION
     Dosage: 10 MG, SCORED TABLET
     Route: 048
  5. NIVOLUMAB [Suspect]
     Active Substance: NIVOLUMAB
     Indication: SQUAMOUS CELL CARCINOMA OF THE ORAL CAVITY
     Dosage: 10 MG / ML, SOLUTION TO BE DILUTED FOR INFUSION
     Route: 042
     Dates: start: 20190129
  6. TINZAPARIN [Suspect]
     Active Substance: TINZAPARIN
     Indication: PULMONARY EMBOLISM
     Route: 058
     Dates: start: 20181129

REACTIONS (1)
  - Respiratory distress [Fatal]

NARRATIVE: CASE EVENT DATE: 20190130
